FAERS Safety Report 4851077-0 (Version None)
Quarter: 2005Q4

REPORT INFORMATION
  Report Type: 
  Country: None (occurrence: None)
  Receive Date: 20051208
  Receipt Date: 20051201
  Transmission Date: 20060501
  Serious: Yes (Other)
  Sender: FDA-Public Use
  Company Number: 2005162995

PATIENT
  Sex: Female
  Weight: 68.0396 kg

DRUGS (3)
  1. CELEBREX [Suspect]
     Indication: ARTHRITIS
  2. CELEBREX [Suspect]
     Indication: JOINT INJURY
  3. TRIAMTERENE (TRIAMTERENE) [Concomitant]

REACTIONS (2)
  - FLUID RETENTION [None]
  - TRIPLE VESSEL BYPASS GRAFT [None]
